FAERS Safety Report 24067214 (Version 3)
Quarter: 2025Q2

REPORT INFORMATION
  Report Type: Spontaneous
  Country: JP (occurrence: JP)
  Receive Date: 20240709
  Receipt Date: 20250513
  Transmission Date: 20250717
  Serious: Yes (Other)
  Sender: ROCHE
  Company Number: JP-CHUGAI-2024022695AA

PATIENT
  Age: 54 Year
  Sex: Female
  Weight: 56.1 kg

DRUGS (9)
  1. HERCEPTIN [Suspect]
     Active Substance: TRASTUZUMAB
     Indication: Invasive ductal breast carcinoma
     Dosage: UNK
     Route: 042
     Dates: start: 20240307, end: 20240327
  2. HERCEPTIN [Suspect]
     Active Substance: TRASTUZUMAB
     Dosage: UNK
     Route: 042
     Dates: start: 20240328, end: 202405
  3. HERCEPTIN [Suspect]
     Active Substance: TRASTUZUMAB
     Dosage: UNK
     Route: 042
     Dates: start: 20240328, end: 202405
  4. PERJETA [Suspect]
     Active Substance: PERTUZUMAB
     Indication: Invasive ductal breast carcinoma
     Dosage: (FORM STRENGTH: 420MG/14ML)
     Route: 042
     Dates: start: 20240307, end: 20240327
  5. PERJETA [Suspect]
     Active Substance: PERTUZUMAB
     Dosage: (FORM STRENGTH: 420MG/14ML)
     Route: 042
     Dates: start: 20240328, end: 202405
  6. PERJETA [Suspect]
     Active Substance: PERTUZUMAB
     Route: 042
     Dates: start: 20240704
  7. DOCETAXEL [Concomitant]
     Active Substance: DOCETAXEL
     Indication: Invasive ductal breast carcinoma
     Route: 042
     Dates: start: 20240307, end: 20240327
  8. PACLITAXEL [Concomitant]
     Active Substance: PACLITAXEL
     Indication: Invasive ductal breast carcinoma
     Route: 042
     Dates: start: 20240328
  9. PACLITAXEL [Concomitant]
     Active Substance: PACLITAXEL
     Route: 042
     Dates: start: 20240708

REACTIONS (1)
  - Vascular access site infection [Recovered/Resolved]

NARRATIVE: CASE EVENT DATE: 20240620
